FAERS Safety Report 14159327 (Version 2)
Quarter: 2018Q1

REPORT INFORMATION
  Report Type: Spontaneous
  Country: JP (occurrence: JP)
  Receive Date: 20171106
  Receipt Date: 20180206
  Transmission Date: 20180508
  Serious: No
  Sender: FDA-Public Use
  Company Number: JP-ROCHE-1988983

PATIENT
  Age: 91 Year
  Sex: Female
  Weight: 40 kg

DRUGS (6)
  1. ACTONEL [Concomitant]
     Active Substance: RISEDRONATE SODIUM
     Dosage: DOSE INTERVAL UNCERTAINTY
     Route: 048
  2. ALECENSA [Suspect]
     Active Substance: ALECTINIB HYDROCHLORIDE
     Indication: LUNG NEOPLASM MALIGNANT
     Route: 048
     Dates: start: 20170606
  3. GLAKAY [Concomitant]
     Active Substance: MENATETRENONE
     Dosage: DOSE INTERVAL UNCERTAINTY
     Route: 048
  4. CONIEL [Concomitant]
     Active Substance: BENIDIPINE HYDROCHLORIDE
     Dosage: DOSE INTERVAL UNCERTAINTY
     Route: 048
  5. NITOROL R [Concomitant]
     Active Substance: ISOSORBIDE DINITRATE
     Dosage: DOSE INTERVAL UNCERTAINTY
     Route: 048
  6. MYONAL (JAPAN) [Concomitant]
     Active Substance: EPERISONE HYDROCHLORIDE
     Dosage: DOSE INTERVAL UNCERTAINTY
     Route: 048

REACTIONS (1)
  - Anaemia macrocytic [Recovering/Resolving]

NARRATIVE: CASE EVENT DATE: 20170822
